FAERS Safety Report 15646995 (Version 1)
Quarter: 2018Q4

REPORT INFORMATION
  Report Type: Spontaneous
  Country: US (occurrence: US)
  Receive Date: 20181122
  Receipt Date: 20181122
  Transmission Date: 20190205
  Serious: Yes (Hospitalization)
  Sender: FDA-Public Use
  Company Number: US-BEH-2018096956

PATIENT
  Age: 40 Year
  Sex: Female

DRUGS (1)
  1. HIZENTRA [Suspect]
     Active Substance: HUMAN IMMUNOGLOBULIN G
     Indication: HYPOGAMMAGLOBULINAEMIA
     Dosage: 8 G, QOW
     Route: 058
     Dates: start: 20170619

REACTIONS (2)
  - Groin pain [Unknown]
  - Syncope [Unknown]

NARRATIVE: CASE EVENT DATE: 20181101
